FAERS Safety Report 12871698 (Version 1)
Quarter: 2016Q4

REPORT INFORMATION
  Report Type: Spontaneous
  Country: US (occurrence: US)
  Receive Date: 20161021
  Receipt Date: 20161021
  Transmission Date: 20170207
  Serious: No
  Sender: FDA-Public Use
  Company Number: None

PATIENT

DRUGS (2)
  1. METHOTREXATE PRESERVATIVE FREE [Suspect]
     Active Substance: METHOTREXATE
  2. METHOTREXATE TABLETS [Suspect]
     Active Substance: METHOTREXATE

REACTIONS (2)
  - Product label issue [None]
  - Product packaging issue [None]
